FAERS Safety Report 25160338 (Version 4)
Quarter: 2025Q2

REPORT INFORMATION
  Report Type: Spontaneous
  Country: US (occurrence: US)
  Receive Date: 20250404
  Receipt Date: 20250526
  Transmission Date: 20250716
  Serious: No
  Sender: ROCHE
  Company Number: US-ROCHE-10000245195

PATIENT

DRUGS (2)
  1. AVASTIN [Suspect]
     Active Substance: BEVACIZUMAB
     Indication: Product used for unknown indication
     Route: 047
  2. AVASTIN [Suspect]
     Active Substance: BEVACIZUMAB
     Route: 047

REACTIONS (3)
  - Product contamination [Unknown]
  - No adverse event [Unknown]
  - Off label use [Unknown]
